FAERS Safety Report 7351360-3 (Version None)
Quarter: 2011Q1

REPORT INFORMATION
  Report Type: 
  Country: None (occurrence: None)
  Receive Date: 20110314
  Receipt Date: 20110301
  Transmission Date: 20110831
  Serious: Yes (Other)
  Sender: FDA-Public Use
  Company Number: PHHY2011BR18308

PATIENT
  Age: 56 Year
  Sex: Female

DRUGS (4)
  1. DIOVAN AMLO FIX [Suspect]
     Indication: HYPERTENSION
     Dosage: 320 MG VALSARTAN AND 5 MG AMLODIPINE
  2. RASILEZ [Suspect]
     Indication: DIABETES MELLITUS
  3. RASILEZ [Suspect]
     Indication: HYPERTENSION
     Dosage: 300 MG, UNK
  4. GALVUS MET [Suspect]
     Indication: DIABETES MELLITUS
     Dosage: 850 MG METFORMIN AND 50 MG VILDAGLIPTIN

REACTIONS (3)
  - DYSPHAGIA [None]
  - WRONG TECHNIQUE IN DRUG USAGE PROCESS [None]
  - GASTRITIS EROSIVE [None]
